FAERS Safety Report 6686151-X (Version None)
Quarter: 2010Q2

REPORT INFORMATION
  Report Type: 
  Country: None (occurrence: None)
  Receive Date: 20100419
  Receipt Date: 20100407
  Transmission Date: 20101027
  Serious: Yes (Hospitalization, Other)
  Sender: FDA-Public Use
  Company Number: PHEH2009US01088

PATIENT
  Sex: Female
  Weight: 105 kg

DRUGS (2)
  1. DIOVAN [Suspect]
     Indication: HYPERTENSION
     Dosage: 160 MG, QD
     Route: 048
     Dates: start: 20080711, end: 20100312
  2. DIOVAN [Suspect]
     Dosage: 160 MG, BID
     Dates: start: 20100313, end: 20100329

REACTIONS (4)
  - NEPHRECTOMY [None]
  - PAIN [None]
  - RENAL CANCER [None]
  - RENAL CELL CARCINOMA [None]
